FAERS Safety Report 11211101 (Version 1)
Quarter: 2015Q2

REPORT INFORMATION
  Report Type: Spontaneous
  Country: FR (occurrence: FR)
  Receive Date: 20150623
  Receipt Date: 20150623
  Transmission Date: 20150821
  Serious: Yes (Other)
  Sender: FDA-Public Use
  Company Number: FR-ROCHE-1596920

PATIENT
  Age: 44 Year
  Sex: Female

DRUGS (4)
  1. BACTRIM [Concomitant]
     Active Substance: SULFAMETHOXAZOLE\TRIMETHOPRIM
  2. IMUREL [Suspect]
     Active Substance: AZATHIOPRINE SODIUM
     Indication: ANTISYNTHETASE SYNDROME
     Route: 065
  3. HYPERIUM [Concomitant]
     Active Substance: RILMENIDINE PHOSPHATE
  4. CELLCEPT [Suspect]
     Active Substance: MYCOPHENOLATE MOFETIL\MYCOPHENOLATE MOFETIL HYDROCHLORIDE
     Indication: ANTISYNTHETASE SYNDROME
     Route: 048
     Dates: start: 2014, end: 201410

REACTIONS (4)
  - Vomiting [Not Recovered/Not Resolved]
  - Abdominal pain [Not Recovered/Not Resolved]
  - General physical health deterioration [Recovering/Resolving]
  - Weight decreased [Recovering/Resolving]

NARRATIVE: CASE EVENT DATE: 2014
